FAERS Safety Report 4432451-3 (Version None)
Quarter: 2004Q3

REPORT INFORMATION
  Report Type: 
  Country: None (occurrence: None)
  Receive Date: 20040818
  Receipt Date: 20040804
  Transmission Date: 20050211
  Serious: Yes (Hospitalization)
  Sender: FDA-Public Use
  Company Number: WAES 0403USA02322

PATIENT
  Age: 34 Year
  Sex: Female

DRUGS (31)
  1. CRIXIVAN [Suspect]
     Indication: HIV INFECTION
     Dosage: 2.4 GM/DAILY, PO; 1.2 MG/DAILY, PO
     Route: 048
     Dates: start: 19980831, end: 19980909
  2. CRIXIVAN [Suspect]
     Indication: HIV INFECTION
     Dosage: 2.4 GM/DAILY, PO; 1.2 MG/DAILY, PO
     Route: 048
     Dates: start: 20000310, end: 20001027
  3. CAP STOCRIN (EFAVIRENZ) [Suspect]
     Indication: HIV INFECTION
     Dosage: 600 MG/DAILY, PO
     Route: 048
     Dates: start: 20000310, end: 20001027
  4. CAP STOCRIN (EFAVIRENZ) [Suspect]
     Indication: HIV INFECTION
     Dosage: 600 MG/DAILY, PO
     Route: 048
     Dates: start: 20010130
  5. CAP RITNOAVIR [Suspect]
     Indication: HIV INFECTION
     Dosage: 400 MG/DAILY, PO
     Route: 048
     Dates: start: 20000310, end: 20001027
  6. TAB ABACAVIR SULFATE [Suspect]
     Indication: HIV INFECTION
     Dosage: 600 MG/DAILY, PO
     Route: 048
     Dates: start: 20010130
  7. CAP LOPINAVIR (+) RITONAVIR [Suspect]
     Indication: HIV INFECTION
     Dosage: 6 CAPSULE/DAILY, PO
     Route: 048
     Dates: start: 20010130
  8. TAB CLARITHROMYCIN [Suspect]
     Indication: INFECTION
     Dosage: 800 MG/DAILY, PO
     Route: 048
     Dates: start: 20001028
  9. ETHAMBUTOL HCL [Suspect]
     Indication: GENERAL SYMPTOM
     Dosage: 500 MG/DAILY, PO
     Route: 048
     Dates: start: 20001028, end: 20011130
  10. SULFAMETHOXAZOLE + TRIMETHOPRIM [Suspect]
     Indication: PROPHYLAXIS
     Dosage: 480 MG/DAILY, PO
     Route: 048
     Dates: start: 20010113, end: 20020319
  11. INJ FOSCAVIR (FOSCARNET NA) [Suspect]
     Indication: CYTOMEGALOVIRUS INFECTION
     Dosage: 180 MG/DAILY, IV; 90 MG/KG/DAILY, IV;98 MG/KG/DAILY, IV;65 MG/KG/DAILY, IV
     Route: 042
     Dates: start: 20000125, end: 20000214
  12. INJ FOSCAVIR (FOSCARNET NA) [Suspect]
     Indication: CYTOMEGALOVIRUS INFECTION
     Dosage: 180 MG/DAILY, IV; 90 MG/KG/DAILY, IV;98 MG/KG/DAILY, IV;65 MG/KG/DAILY, IV
     Route: 042
     Dates: start: 20000215, end: 20000303
  13. INJ FOSCAVIR (FOSCARNET NA) [Suspect]
     Indication: CYTOMEGALOVIRUS INFECTION
     Dosage: 180 MG/DAILY, IV; 90 MG/KG/DAILY, IV;98 MG/KG/DAILY, IV;65 MG/KG/DAILY, IV
     Route: 042
     Dates: start: 20000404, end: 20000406
  14. INJ FOSCAVIR (FOSCARNET NA) [Suspect]
     Indication: CYTOMEGALOVIRUS INFECTION
     Dosage: 180 MG/DAILY, IV; 90 MG/KG/DAILY, IV;98 MG/KG/DAILY, IV;65 MG/KG/DAILY, IV
     Route: 042
     Dates: start: 20000407, end: 20000426
  15. INJ DENOSINE (GANCICLOVIR SODIUM) [Suspect]
     Indication: CYTOMEGALOVIRUS INFECTION
     Dosage: 10 MG/KG/DAILY, IV; 5 MG/KG/DAILY, IV;10 MG/KG/DAILY, IV; 5 MG/KG/DAILY, IV
     Route: 042
     Dates: start: 20000215, end: 20000306
  16. INJ DENOSINE (GANCICLOVIR SODIUM) [Suspect]
     Indication: CYTOMEGALOVIRUS INFECTION
     Dosage: 10 MG/KG/DAILY, IV; 5 MG/KG/DAILY, IV;10 MG/KG/DAILY, IV; 5 MG/KG/DAILY, IV
     Route: 042
     Dates: start: 20000307, end: 20000402
  17. INJ DENOSINE (GANCICLOVIR SODIUM) [Suspect]
     Indication: CYTOMEGALOVIRUS INFECTION
     Dosage: 10 MG/KG/DAILY, IV; 5 MG/KG/DAILY, IV;10 MG/KG/DAILY, IV; 5 MG/KG/DAILY, IV
     Route: 042
     Dates: start: 20000403, end: 20000424
  18. INJ DENOSINE (GANCICLOVIR SODIUM) [Suspect]
     Indication: CYTOMEGALOVIRUS INFECTION
     Dosage: 10 MG/KG/DAILY, IV; 5 MG/KG/DAILY, IV;10 MG/KG/DAILY, IV; 5 MG/KG/DAILY, IV
     Route: 042
     Dates: start: 20000425, end: 20000426
  19. LACTEC D [Concomitant]
  20. SOLITA T-3 [Concomitant]
  21. CIPROFLOXACIN HCL [Concomitant]
  22. DEXTROSE [Concomitant]
  23. HYDROCORTISONE [Concomitant]
  24. HYDROCORTISONE SODIUM PHOSPHATE [Concomitant]
  25. HYDROXYZINE PHOSPHATE [Concomitant]
  26. LAMIVUDINE [Concomitant]
  27. MORPHNIE HCL [Concomitant]
  28. PREDNISOLONE [Concomitant]
  29. RIFAMPIN [Concomitant]
  30. ROXITHROMYCIN [Concomitant]
  31. ZIDOVUDINE [Concomitant]

REACTIONS (17)
  - ANOREXIA [None]
  - BLOOD ALKALINE PHOSPHATASE INCREASED [None]
  - BLOOD CHLORIDE DECREASED [None]
  - BLOOD CREATININE DECREASED [None]
  - BLOOD SODIUM DECREASED [None]
  - CALCULUS URINARY [None]
  - CREATININE RENAL CLEARANCE DECREASED [None]
  - CYTOMEGALOVIRUS INFECTION [None]
  - DEHYDRATION [None]
  - DIZZINESS [None]
  - DRUG INEFFECTIVE [None]
  - ELECTROLYTE IMBALANCE [None]
  - GAMMA-GLUTAMYLTRANSFERASE INCREASED [None]
  - HIV WASTING SYNDROME [None]
  - HYPERLIPIDAEMIA [None]
  - NAUSEA [None]
  - VOMITING [None]
